FAERS Safety Report 17684420 (Version 1)
Quarter: 2020Q2

REPORT INFORMATION
  Report Type: Spontaneous
  Country: US (occurrence: US)
  Receive Date: 20200418
  Receipt Date: 20200418
  Transmission Date: 20200714
  Serious: Yes (Disabling)
  Sender: FDA-Public Use
  Company Number: None

PATIENT
  Age: 37 Year
  Sex: Male
  Weight: 74.25 kg

DRUGS (5)
  1. VITAMIN D 50000 IU [Concomitant]
     Active Substance: ERGOCALCIFEROL
  2. PREDNISONE 7.5MG [Concomitant]
  3. PROBIOTIC [Concomitant]
     Active Substance: PROBIOTICS NOS
  4. EMGALITY [Suspect]
     Active Substance: GALCANEZUMAB-GNLM
     Indication: MIGRAINE
     Dates: start: 20190126, end: 20191117
  5. AIMOVIG [Suspect]
     Active Substance: ERENUMAB-AOOE

REACTIONS (9)
  - Serum sickness [None]
  - Depression [None]
  - Anxiety [None]
  - Insomnia [None]
  - Disability [None]
  - Arthritis reactive [None]
  - Tremor [None]
  - Blood calcium increased [None]
  - Mental disorder [None]

NARRATIVE: CASE EVENT DATE: 20191117
